FAERS Safety Report 23516923 (Version 1)
Quarter: 2024Q1

REPORT INFORMATION
  Report Type: Spontaneous
  Country: ES (occurrence: ES)
  Receive Date: 20240213
  Receipt Date: 20240213
  Transmission Date: 20240410
  Serious: Yes (Hospitalization)
  Sender: FDA-Public Use
  Company Number: ES-MYLANLABS-2024M1012743

PATIENT
  Age: 15 Year
  Sex: Female

DRUGS (6)
  1. BLEOMYCIN [Suspect]
     Active Substance: BLEOMYCIN SULFATE
     Indication: Ovarian germ cell teratoma stage III
     Dosage: UNK UNK, CYCLE (3 CYCLES)
     Route: 065
  2. CISPLATIN [Suspect]
     Active Substance: CISPLATIN
     Indication: Ovarian germ cell teratoma stage III
     Dosage: UNK, CYCLE (3 CYCLES)
     Route: 065
  3. CISPLATIN [Suspect]
     Active Substance: CISPLATIN
     Dosage: UNK, CYCLE (5 CYCLES)
     Route: 065
  4. PACLITAXEL [Suspect]
     Active Substance: PACLITAXEL
     Indication: Ovarian germ cell teratoma stage III
     Dosage: UNK, CYCLE (5 CYCLES)
     Route: 065
  5. ETOPOSIDE [Suspect]
     Active Substance: ETOPOSIDE
     Indication: Ovarian germ cell teratoma stage III
     Dosage: UNK UNK, CYCLE (3 CYCLES)
     Route: 065
  6. IFOSFAMIDE [Suspect]
     Active Substance: IFOSFAMIDE
     Indication: Ovarian germ cell teratoma stage III
     Dosage: UNK UNK, CYCLE (5 CYCLES)
     Route: 065

REACTIONS (3)
  - Disease progression [Unknown]
  - Drug ineffective [Unknown]
  - Off label use [Unknown]
